FAERS Safety Report 13646209 (Version 1)
Quarter: 2017Q2

REPORT INFORMATION
  Report Type: Spontaneous
  Country: US (occurrence: US)
  Receive Date: 20170612
  Receipt Date: 20170612
  Transmission Date: 20170830
  Serious: Yes (Disabling, Other)
  Sender: FDA-Public Use
  Company Number: None

PATIENT
  Age: 45 Year
  Sex: Female
  Weight: 90 kg

DRUGS (8)
  1. VITAMIN B12 [Concomitant]
     Active Substance: CYANOCOBALAMIN
  2. MULTI VITAMINS [Concomitant]
     Active Substance: VITAMINS
  3. HYOSCYAMINE 0.125 MG SUB COU [Suspect]
     Active Substance: HYOSCYAMINE
     Indication: MICTURITION URGENCY
     Dosage: ?          QUANTITY:1 TABLET(S);?EVERY 4 HOURS SUBLINGUAL
     Route: 060
     Dates: start: 20120817
  4. VITAMIN K2 [Concomitant]
     Active Substance: MENAQUINONE 6
  5. CRANBERRY SUPPLEMENTS [Concomitant]
  6. CALCIUM [Concomitant]
     Active Substance: CALCIUM
  7. VITAMIN D3 [Concomitant]
     Active Substance: CHOLECALCIFEROL
  8. HYOSCYAMINE 0.125 MG SUB COU [Suspect]
     Active Substance: HYOSCYAMINE
     Indication: POLLAKIURIA
     Dosage: ?          QUANTITY:1 TABLET(S);?EVERY 4 HOURS SUBLINGUAL
     Route: 060
     Dates: start: 20120817

REACTIONS (5)
  - Abdominal distension [None]
  - Insomnia [None]
  - Hypoaesthesia [None]
  - Amnesia [None]
  - Paraesthesia [None]
